FAERS Safety Report 9018698 (Version 1)
Quarter: 2013Q1

REPORT INFORMATION
  Report Type: Spontaneous
  Country: GB (occurrence: GB)
  Receive Date: 20130118
  Receipt Date: 20130118
  Transmission Date: 20140127
  Serious: Yes (Hospitalization)
  Sender: FDA-Public Use
  Company Number: PHFR2013GB000647

PATIENT
  Age: 54 Year
  Sex: Male

DRUGS (7)
  1. CLOZAPINE [Suspect]
     Indication: SCHIZOPHRENIA
     Route: 048
     Dates: start: 20121201, end: 20121221
  2. CLONAZEPAM [Concomitant]
     Route: 048
  3. HALOPERIDOL [Concomitant]
     Route: 048
  4. PROCYCLIDINE [Concomitant]
     Route: 048
  5. LISINOPRIL [Concomitant]
     Route: 048
  6. VALPROIC ACID [Concomitant]
     Dosage: EVERY MORNING.
     Route: 048
  7. VALPROIC ACID [Concomitant]
     Dosage: EVERY NIGHT.
     Route: 048

REACTIONS (4)
  - Acidosis [Recovering/Resolving]
  - Sepsis [Recovering/Resolving]
  - Renal failure acute [Recovering/Resolving]
  - Hypotension [Recovering/Resolving]
